FAERS Safety Report 17284769 (Version 1)
Quarter: 2020Q1

REPORT INFORMATION
  Report Type: Spontaneous
  Country: US (occurrence: US)
  Receive Date: 20200117
  Receipt Date: 20200117
  Transmission Date: 20200409
  Serious: Yes (Hospitalization)
  Sender: FDA-Public Use
  Company Number: US-TEVA-2020-US-1168752

PATIENT
  Sex: Female

DRUGS (1)
  1. ALPRAZOLAM OR ALPRAZOLAM XR ACTAVIS [Suspect]
     Active Substance: ALPRAZOLAM
     Dosage: EXTENDED RELEASE
     Route: 065

REACTIONS (2)
  - Rash [Unknown]
  - Withdrawal syndrome [Unknown]
